FAERS Safety Report 7328124-X (Version None)
Quarter: 2011Q1

REPORT INFORMATION
  Report Type: 
  Country: None (occurrence: None)
  Receive Date: 20110303
  Receipt Date: 20110218
  Transmission Date: 20110831
  Serious: Yes (Hospitalization, Other)
  Sender: FDA-Public Use
  Company Number: PHFR2010GB05047

PATIENT
  Sex: Female

DRUGS (3)
  1. AMISULPRIDE [Concomitant]
     Indication: SCHIZOPHRENIA
     Dosage: UNK
  2. CLOZARIL [Suspect]
     Indication: SCHIZOPHRENIA
     Dosage: UNK
     Route: 048
     Dates: start: 19971111, end: 20101022
  3. CLOZARIL [Suspect]
     Dosage: 50 MG, UNK
     Route: 048
     Dates: start: 20101027, end: 20101103

REACTIONS (2)
  - ABNORMAL BEHAVIOUR [None]
  - HYPOTENSION [None]
